FAERS Safety Report 16682688 (Version 2)
Quarter: 2019Q3

REPORT INFORMATION
  Report Type: Spontaneous
  Country: CN (occurrence: CN)
  Receive Date: 20190808
  Receipt Date: 20190906
  Transmission Date: 20191004
  Serious: Yes (Other)
  Sender: FDA-Public Use
  Company Number: CN-ASTRAZENECA-2019SF12214

PATIENT
  Sex: Female

DRUGS (2)
  1. IRESSA [Suspect]
     Active Substance: GEFITINIB
     Indication: NON-SMALL CELL LUNG CANCER
     Dosage: ONCE A DAY, 1 TABLET/TIMES
     Route: 048
     Dates: start: 20170120, end: 201904
  2. IRESSA [Suspect]
     Active Substance: GEFITINIB
     Indication: LUNG ADENOCARCINOMA
     Dosage: ONCE A DAY, 1 TABLET/TIMES
     Route: 048
     Dates: start: 20170120, end: 201904

REACTIONS (5)
  - Skin discolouration [Unknown]
  - Pruritus [Recovered/Resolved]
  - Malignant neoplasm progression [Unknown]
  - Drug resistance [Unknown]
  - Diarrhoea [Recovered/Resolved]
